FAERS Safety Report 9343240 (Version 1)
Quarter: 2013Q2

REPORT INFORMATION
  Report Type: Spontaneous
  Country: CN (occurrence: CN)
  Receive Date: 20130611
  Receipt Date: 20130611
  Transmission Date: 20140414
  Serious: Yes (Other)
  Sender: FDA-Public Use
  Company Number: CN-BAXTER-2013BAX020897

PATIENT
  Age: 0 Year
  Sex: Female
  Weight: 3.1 kg

DRUGS (3)
  1. PERITONEAL DIALYSIS SOLUTION (LACTATE- G2.5%) [Suspect]
     Indication: PERITONEAL DIALYSIS
     Route: 033
     Dates: start: 20120529, end: 20120530
  2. GLUCOSE [Suspect]
     Indication: PERITONEAL DIALYSIS
     Dates: start: 20120529
  3. GLUCOSE [Suspect]
     Dates: start: 20120530

REACTIONS (2)
  - Hyperglycaemia [Recovering/Resolving]
  - Hypokalaemia [Recovering/Resolving]
